FAERS Safety Report 4272258-3 (Version None)
Quarter: 2004Q1

REPORT INFORMATION
  Report Type: 
  Country: None (occurrence: None)
  Receive Date: 20040114
  Receipt Date: 20040107
  Transmission Date: 20041129
  Serious: Yes (Hospitalization)
  Sender: FDA-Public Use
  Company Number: 2004001084

PATIENT
  Age: 70 Year
  Sex: Male

DRUGS (1)
  1. LOPID [Suspect]
     Indication: HYPERCHOLESTEROLAEMIA
     Dosage: ORAL
     Route: 048
     Dates: end: 20021213

REACTIONS (2)
  - CHOLELITHIASIS [None]
  - PANCREATITIS [None]
